FAERS Safety Report 9688044 (Version 1)
Quarter: 2013Q4

REPORT INFORMATION
  Report Type: Report from Study
  Country: US (occurrence: US)
  Receive Date: 20131114
  Receipt Date: 20131114
  Transmission Date: 20140711
  Serious: Yes (Other)
  Sender: FDA-Public Use
  Company Number: PHEH2013US023784

PATIENT
  Age: 42 Year
  Sex: Female

DRUGS (13)
  1. GILENYA [Suspect]
     Indication: MULTIPLE SCLEROSIS
     Dosage: 0.5 MG, QD
     Route: 048
     Dates: start: 201309
  2. LYRICA [Concomitant]
     Dosage: 75 MG, UNK
  3. ATENOLOL [Concomitant]
     Dosage: 50 MG, UNK
  4. METFORMIN HYDROCHLORIDE [Concomitant]
     Dosage: 500 MG, UNK
  5. FLUOXETINE HYDROCHLORIDE [Concomitant]
     Dosage: 20 MG, UNK
  6. PRAVASTATIN SODIUM [Concomitant]
     Dosage: 40 MG, UNK
  7. TOPIRAMATE [Concomitant]
     Dosage: 50 MG, UNK
  8. LISINOPRIL [Concomitant]
     Dosage: 10 MG, UNK
  9. BACLOFEN [Concomitant]
     Dosage: 10 MG, UNK
  10. LEVOTHYROXINE [Concomitant]
     Dosage: 25 UG, UNK
  11. OXYCODONE AND ACETAMINOPHEN [Concomitant]
  12. VITAMIN D3 [Concomitant]
     Dosage: 5000 U, UNK
  13. OMEPRAZOLE [Concomitant]
     Dosage: 20 MG, UNK

REACTIONS (10)
  - Fall [Unknown]
  - Fatigue [Unknown]
  - Confusional state [Unknown]
  - Insomnia [Unknown]
  - Pain in extremity [Unknown]
  - Arthralgia [Unknown]
  - Alopecia [Unknown]
  - Vision blurred [Unknown]
  - Dizziness [Unknown]
  - Headache [Unknown]
